FAERS Safety Report 13661464 (Version 1)
Quarter: 2017Q2

REPORT INFORMATION
  Report Type: Spontaneous
  Country: US (occurrence: US)
  Receive Date: 20170616
  Receipt Date: 20170616
  Transmission Date: 20170830
  Serious: No
  Sender: FDA-Public Use
  Company Number: US-US WORLDMEDS, LLC-USW201610-000724

PATIENT
  Sex: Female

DRUGS (1)
  1. APOKYN [Suspect]
     Active Substance: APOMORPHINE HYDROCHLORIDE

REACTIONS (8)
  - Freezing phenomenon [Unknown]
  - Agitation [Unknown]
  - Memory impairment [Unknown]
  - Hallucination [Unknown]
  - Heart rate increased [Unknown]
  - Erythema [Unknown]
  - Fall [Unknown]
  - Fatigue [Unknown]
